FAERS Safety Report 10035365 (Version 1)
Quarter: 2014Q1

REPORT INFORMATION
  Report Type: Spontaneous
  Country: US (occurrence: US)
  Receive Date: 20140325
  Receipt Date: 20140325
  Transmission Date: 20141002
  Serious: Yes (Hospitalization)
  Sender: FDA-Public Use
  Company Number: US-ACTAVIS-2014-05208

PATIENT
  Age: 50 Year
  Sex: Female
  Weight: 127 kg

DRUGS (7)
  1. MICONAZOLE NITRATE-MICONAZOLE (AMALLC) [Suspect]
     Indication: FUNGAL INFECTION
     Dosage: UNK UNK, SINGLE
     Route: 067
     Dates: start: 20140309, end: 20140309
  2. CLONAZEPAM [Concomitant]
     Indication: ANXIETY
     Dosage: 0.5 MG, DAILY
     Route: 048
  3. POTASSIUM CHLORIDE [Concomitant]
     Indication: ELECTROLYTE SUBSTITUTION THERAPY
     Dosage: 20 MEQ, DAILY
     Route: 048
  4. HYDROCHLOROTHIAZIDE [Concomitant]
     Indication: HYPERTENSION
     Dosage: 12.5 MG, DAILY
     Route: 048
  5. METFORMIN [Concomitant]
     Indication: DIABETES MELLITUS
     Dosage: 100 MG, DAILY
     Route: 048
  6. HUMALOG [Concomitant]
     Indication: DIABETES MELLITUS
     Dosage: 75/50, BID
     Route: 058
  7. ATENOLOL [Concomitant]
     Indication: BLOOD PRESSURE INCREASED
     Dosage: 60 MG, DAILY
     Route: 048

REACTIONS (4)
  - Pruritus [Not Recovered/Not Resolved]
  - Vulvovaginal swelling [Not Recovered/Not Resolved]
  - Urticaria [Not Recovered/Not Resolved]
  - Vulvovaginal burning sensation [Not Recovered/Not Resolved]
